FAERS Safety Report 7734453-8 (Version None)
Quarter: 2011Q3

REPORT INFORMATION
  Report Type: 
  Country: None (occurrence: None)
  Receive Date: 20110907
  Receipt Date: 20110902
  Transmission Date: 20111222
  Serious: Yes (Life-Threatening)
  Sender: FDA-Public Use
  Company Number: US-BAYER-2011-081856

PATIENT
  Sex: Female

DRUGS (1)
  1. YAZ [Suspect]
     Indication: PRODUCT USED FOR UNKNOWN INDICATION
     Dosage: UNK
     Dates: start: 20061001, end: 20100301

REACTIONS (10)
  - DEEP VEIN THROMBOSIS [None]
  - MESENTERIC VEIN THROMBOSIS [None]
  - GENERAL PHYSICAL HEALTH DETERIORATION [None]
  - PULMONARY EMBOLISM [None]
  - PAIN [None]
  - SPLENIC VEIN THROMBOSIS [None]
  - EMOTIONAL DISTRESS [None]
  - JUGULAR VEIN THROMBOSIS [None]
  - INJURY [None]
  - PORTAL VEIN THROMBOSIS [None]
